FAERS Safety Report 25351686 (Version 1)
Quarter: 2025Q2

REPORT INFORMATION
  Report Type: Spontaneous
  Country: US (occurrence: US)
  Receive Date: 20250523
  Receipt Date: 20250523
  Transmission Date: 20250716
  Serious: Yes (Other)
  Sender: MERCK SHARP & DOHME LLC
  Company Number: US-009507513-2285820

PATIENT
  Sex: Male

DRUGS (4)
  1. DIFICID [Suspect]
     Active Substance: FIDAXOMICIN
     Route: 048
     Dates: start: 20250512, end: 20250512
  2. DIFICID [Suspect]
     Active Substance: FIDAXOMICIN
     Route: 048
  3. DIFICID [Suspect]
     Active Substance: FIDAXOMICIN
     Route: 048
     Dates: start: 20250513, end: 20250513
  4. DIFICID [Suspect]
     Active Substance: FIDAXOMICIN
     Route: 048
     Dates: start: 20250514

REACTIONS (5)
  - Craniocerebral injury [Unknown]
  - Inappropriate schedule of product administration [Unknown]
  - Product packaging difficult to open [Unknown]
  - Product packaging quantity issue [Unknown]
  - Product container seal issue [Unknown]

NARRATIVE: CASE EVENT DATE: 20250512
